FAERS Safety Report 9530769 (Version 1)
Quarter: 2013Q2

REPORT INFORMATION
  Report Type: Spontaneous
  Country: US (occurrence: None)
  Receive Date: 20130418
  Receipt Date: 20130418
  Transmission Date: 20140414
  Serious: Yes (Other)
  Sender: FDA-Public Use
  Company Number: 1004USA01613

PATIENT
  Age: 7 Year
  Sex: Female
  Weight: 21.8 kg

DRUGS (1)
  1. SINGULAIR [Suspect]
     Indication: MULTIPLE ALLERGIES
     Route: 048
     Dates: start: 20090624, end: 20090709

REACTIONS (3)
  - Aggression [None]
  - Fatigue [None]
  - Nightmare [None]
